FAERS Safety Report 9632931 (Version 2)
Quarter: 2013Q4

REPORT INFORMATION
  Report Type: Spontaneous
  Country: US (occurrence: US)
  Receive Date: 20131018
  Receipt Date: 20131018
  Transmission Date: 20140711
  Serious: Yes (Life-Threatening, Hospitalization)
  Sender: FDA-Public Use
  Company Number: CHPA2011US14450

PATIENT
  Age: 77 Year
  Sex: Female

DRUGS (5)
  1. EXCEDRIN PM [Suspect]
     Indication: POOR QUALITY SLEEP
     Dosage: 1 DF, QD
     Route: 048
  2. EXCEDRIN PM [Suspect]
     Indication: OFF LABEL USE
  3. EXCEDRIN EXTRA STRENGTH [Suspect]
     Indication: HEADACHE
     Dosage: 2 UNK, UNK
     Route: 048
  4. EXCEDRIN EXTRA STRENGTH [Suspect]
     Indication: SINUS HEADACHE
  5. EXCEDRIN EXTRA STRENGTH [Suspect]
     Indication: OFF LABEL USE

REACTIONS (13)
  - Feeling abnormal [Recovered/Resolved]
  - Cerebral haemorrhage [Recovered/Resolved]
  - Memory impairment [Recovering/Resolving]
  - Aneurysm [Recovered/Resolved]
  - Confusional state [Recovered/Resolved]
  - Agitation [Recovered/Resolved]
  - Skin discolouration [Recovered/Resolved]
  - Erythema [Recovered/Resolved]
  - Vomiting [Recovered/Resolved]
  - Incorrect drug administration duration [Unknown]
  - Underdose [Unknown]
  - Therapeutic response unexpected [Unknown]
  - Therapeutic response decreased [Unknown]
